FAERS Safety Report 8816958 (Version 1)
Quarter: 2012Q4

REPORT INFORMATION
  Report Type: Spontaneous
  Country: ES (occurrence: None)
  Receive Date: 20121002
  Receipt Date: 20121002
  Transmission Date: 20130627
  Serious: Yes (Other)
  Sender: FDA-Public Use
  Company Number: 2012P1059079

PATIENT
  Age: 48 Year
  Sex: Female

DRUGS (3)
  1. LAMOTRIGINE [Suspect]
     Indication: EPILEPSY
     Dates: start: 2006, end: 201001
  2. LAMOTRIGINE [Suspect]
     Indication: EPILEPSY
     Dates: start: 201001
  3. LEVETIRACETAM [Concomitant]

REACTIONS (5)
  - Rash pruritic [None]
  - Rash erythematous [None]
  - Exfoliative rash [None]
  - Histone antibody positive [None]
  - Dermatitis [None]
